FAERS Safety Report 5909838-2 (Version None)
Quarter: 2008Q4

REPORT INFORMATION
  Report Type: 
  Country: None (occurrence: None)
  Receive Date: 20081007
  Receipt Date: 20081003
  Transmission Date: 20090506
  Serious: Yes (Death, Other)
  Sender: FDA-Public Use
  Company Number: FR-BRISTOL-MYERS SQUIBB COMPANY-14357354

PATIENT

DRUGS (1)
  1. SPRYCEL [Suspect]

REACTIONS (2)
  - BLOOD DISORDER [None]
  - PROSTATE CANCER [None]
